FAERS Safety Report 19625918 (Version 3)
Quarter: 2021Q4

REPORT INFORMATION
  Report Type: Spontaneous
  Country: PT (occurrence: PT)
  Receive Date: 20210729
  Receipt Date: 20211012
  Transmission Date: 20220303
  Serious: Yes (Hospitalization, Other)
  Sender: FDA-Public Use
  Company Number: PT-LUPIN PHARMACEUTICALS INC.-2021-13008

PATIENT
  Age: 38 Year
  Sex: Female

DRUGS (4)
  1. ALBUTEROL SULFATE [Suspect]
     Active Substance: ALBUTEROL SULFATE
     Indication: Congenital myasthenic syndrome
     Dosage: 12 MILLIGRAM, QD
     Route: 065
  2. PYRIDOSTIGMINE [Suspect]
     Active Substance: PYRIDOSTIGMINE
     Indication: Congenital myasthenic syndrome
     Dosage: 360 MILLIGRAM, QD
     Route: 065
  3. HUMAN IMMUNOGLOBULIN G [Suspect]
     Active Substance: HUMAN IMMUNOGLOBULIN G
     Indication: Congenital myasthenic syndrome
     Dosage: 2 GRAM PER KILOGRAM, 4 WEEK
     Route: 042
  4. PREDNISOLONE [Suspect]
     Active Substance: PREDNISOLONE
     Indication: Congenital myasthenic syndrome
     Dosage: 1 MILLIGRAM/KILOGRAM, QD, TOTAL OF 50 MG/DAY, INCREMENT OF 10MG WEEKLY
     Route: 065

REACTIONS (5)
  - Drug ineffective [Unknown]
  - Maternal exposure during pregnancy [Unknown]
  - Condition aggravated [Recovered/Resolved]
  - Premature delivery [Unknown]
  - Maternal exposure during breast feeding [Unknown]
